FAERS Safety Report 14167775 (Version 1)
Quarter: 2017Q4

REPORT INFORMATION
  Report Type: Spontaneous
  Country: US (occurrence: US)
  Receive Date: 20171108
  Receipt Date: 20171108
  Transmission Date: 20180321
  Serious: Yes (Death, Other)
  Sender: FDA-Public Use
  Company Number: US-009507513-1710USA015497

PATIENT
  Age: 47 Year
  Sex: Female

DRUGS (3)
  1. NEUPOGEN [Concomitant]
     Active Substance: FILGRASTIM
  2. POTASSIUM CHLORIDE. [Concomitant]
     Active Substance: POTASSIUM CHLORIDE
  3. INTRON A [Suspect]
     Active Substance: INTERFERON ALFA-2B
     Indication: ADULT T-CELL LYMPHOMA/LEUKAEMIA
     Dosage: 1 ML DAILY
     Route: 058
     Dates: end: 201710

REACTIONS (1)
  - Death [Fatal]

NARRATIVE: CASE EVENT DATE: 20171030
